FAERS Safety Report 25360934 (Version 2)
Quarter: 2025Q2

REPORT INFORMATION
  Report Type: Spontaneous
  Country: US (occurrence: US)
  Receive Date: 20250527
  Receipt Date: 20250626
  Transmission Date: 20250716
  Serious: Yes (Disabling, Other)
  Sender: NOVO NORDISK
  Company Number: US-NOVOPROD-1434510

PATIENT
  Age: 74 Year
  Sex: Female

DRUGS (2)
  1. OZEMPIC [Suspect]
     Active Substance: SEMAGLUTIDE
     Dosage: 0.5 MG, QW
     Route: 058
     Dates: start: 202408
  2. OZEMPIC [Suspect]
     Active Substance: SEMAGLUTIDE
     Indication: Type 2 diabetes mellitus
     Dosage: 0.25 MG, QW
     Route: 058
     Dates: start: 20240903

REACTIONS (12)
  - Gait disturbance [Recovered/Resolved]
  - Road traffic accident [Unknown]
  - Influenza [Recovered/Resolved]
  - Osteoporosis [Not Recovered/Not Resolved]
  - Food aversion [Unknown]
  - Weight increased [Not Recovered/Not Resolved]
  - Tremor [Recovered/Resolved]
  - Dysphagia [Recovered/Resolved]
  - Hypersensitivity [Unknown]
  - Diabetes mellitus inadequate control [Not Recovered/Not Resolved]
  - Wrong technique in product usage process [Recovered/Resolved]
  - Off label use [Recovered/Resolved]

NARRATIVE: CASE EVENT DATE: 20241201
